FAERS Safety Report 4745351-6 (Version None)
Quarter: 2005Q3

REPORT INFORMATION
  Report Type: 
  Country: None (occurrence: None)
  Receive Date: 20050815
  Receipt Date: 20050803
  Transmission Date: 20060218
  Serious: Yes (Hospitalization, Other)
  Sender: FDA-Public Use
  Company Number: 2005110015

PATIENT
  Sex: Male

DRUGS (2)
  1. LISTERINE (MENTHOL, METHYL SALICYLATE, EUCALYPTOL, THYMOL) [Suspect]
     Indication: INTENTIONAL MISUSE
     Dosage: ORAL
     Route: 048
  2. FLUNITRAZEPAM (FLUNITRAZEPAM) [Suspect]

REACTIONS (1)
  - INTENTIONAL MISUSE [None]
